FAERS Safety Report 6706007-3 (Version None)
Quarter: 2010Q2

REPORT INFORMATION
  Report Type: 
  Country: None (occurrence: None)
  Receive Date: 20100503
  Receipt Date: 20100422
  Transmission Date: 20101027
  Serious: Yes (Other)
  Sender: FDA-Public Use
  Company Number: CN-ASTRAZENECA-2010SE17957

PATIENT
  Sex: Female

DRUGS (1)
  1. CRESTOR [Suspect]
     Indication: CORONARY ARTERY DISEASE
     Route: 048

REACTIONS (3)
  - DRUG EXPOSURE DURING PREGNANCY [None]
  - ELECTROCARDIOGRAM ST SEGMENT ELEVATION [None]
  - MYOCARDIAL INFARCTION [None]
